FAERS Safety Report 8361773-9 (Version None)
Quarter: 2012Q2

REPORT INFORMATION
  Report Type: 
  Country: None (occurrence: None)
  Receive Date: 20120515
  Receipt Date: 20120514
  Transmission Date: 20120825
  Serious: Yes (Hospitalization)
  Sender: FDA-Public Use
  Company Number: US-GLAXOSMITHKLINE-A0935797A

PATIENT
  Age: 43 Year
  Sex: Female

DRUGS (1)
  1. AVANDIA [Suspect]
     Indication: DIABETES MELLITUS
     Dosage: 8MG PER DAY
     Route: 048
     Dates: start: 20020903, end: 20070929

REACTIONS (6)
  - CARDIAC PACEMAKER INSERTION [None]
  - CARDIAC FAILURE [None]
  - STENT PLACEMENT [None]
  - STRESS [None]
  - HYPOXIA [None]
  - CEREBROVASCULAR ACCIDENT [None]
